FAERS Safety Report 8945952 (Version 1)
Quarter: 2012Q4

REPORT INFORMATION
  Report Type: 
  Country: JP (occurrence: JP)
  Receive Date: 20121205
  Receipt Date: 20121205
  Transmission Date: 20130627
  Serious: Yes (Other)
  Sender: FDA-Public Use
  Company Number: JP-UCBSA-072205

PATIENT
  Age: 40 Year
  Sex: Male

DRUGS (9)
  1. E KEPPRA [Suspect]
     Route: 048
  2. E KEPPRA [Suspect]
     Dosage: 1500 mg/day
     Route: 048
  3. DEPAKENE [Suspect]
     Route: 048
  4. DEPAKENE [Suspect]
     Dosage: DECREASED BY 3ML/WEEK
     Route: 048
  5. ALEVIATIN [Concomitant]
     Route: 048
  6. PHENOBARBITAL [Concomitant]
     Route: 048
  7. CARBAMAZEPINE [Concomitant]
     Route: 048
  8. DIAMOX [Concomitant]
     Route: 048
  9. RIVOTRIL [Concomitant]
     Route: 048

REACTIONS (1)
  - Status epilepticus [Unknown]
